FAERS Safety Report 9067848 (Version 2)
Quarter: 2013Q2

REPORT INFORMATION
  Report Type: Spontaneous
  Country: US (occurrence: US)
  Receive Date: 20130128
  Receipt Date: 20130401
  Transmission Date: 20140414
  Serious: Yes (Other)
  Sender: FDA-Public Use
  Company Number: US-BAYER-2013-010672

PATIENT
  Age: 27 Year
  Sex: Female
  Weight: 131.52 kg

DRUGS (7)
  1. YAZ [Suspect]
  2. YASMIN [Suspect]
  3. ZARAH [Suspect]
  4. MEDROXYPROGESTERONE [Concomitant]
     Dosage: 10 MG, UNK
     Route: 048
  5. VITAMINS [Concomitant]
     Dosage: UNK UNK, QD
     Dates: start: 20120413
  6. OMEPRAZOLE [Concomitant]
     Dosage: 20 MG, QD
     Route: 048
     Dates: start: 20120120, end: 20120912
  7. OCELLA [Suspect]

REACTIONS (5)
  - Thrombophlebitis superficial [None]
  - Thrombosis [None]
  - Injury [None]
  - Pain [None]
  - Pain [None]
